FAERS Safety Report 9668705 (Version 1)
Quarter: 2013Q4

REPORT INFORMATION
  Report Type: Spontaneous
  Country: NL (occurrence: NL)
  Receive Date: 20131105
  Receipt Date: 20131105
  Transmission Date: 20140711
  Serious: Yes (Hospitalization)
  Sender: FDA-Public Use
  Company Number: NL-ASTRAZENECA-2013SE79199

PATIENT
  Age: 61 Year
  Sex: Female
  Weight: 70 kg

DRUGS (3)
  1. METOPROLOL (SUCCINAAT) [Suspect]
     Route: 048
     Dates: start: 200809
  2. CITALOPRAM [Interacting]
     Indication: ANXIETY DISORDER
     Route: 048
     Dates: start: 199612
  3. ZYPREXA [Interacting]
     Indication: PANIC DISORDER
     Route: 048
     Dates: start: 200803, end: 201212

REACTIONS (3)
  - Drug interaction [Unknown]
  - Petit mal epilepsy [Unknown]
  - Head injury [Unknown]
